FAERS Safety Report 9828681 (Version 3)
Quarter: 2014Q1

REPORT INFORMATION
  Report Type: Spontaneous
  Country: US (occurrence: US)
  Receive Date: 20140117
  Receipt Date: 20140321
  Transmission Date: 20141002
  Serious: Yes (Other)
  Sender: FDA-Public Use
  Company Number: US-ELI_LILLY_AND_COMPANY-US201401002110

PATIENT
  Age: 73 Year
  Sex: Male
  Weight: 84.81 kg

DRUGS (12)
  1. HUMULIN NPH [Suspect]
     Indication: DIABETES MELLITUS
     Dosage: 60 U, BID
     Route: 058
     Dates: start: 1998
  2. LYRICA [Concomitant]
     Dosage: 75 MG, BID
  3. TOPROL [Concomitant]
     Dosage: 50 MG, QD
  4. LISINOPRIL [Concomitant]
     Dosage: 20 MG, QD
  5. METFORMIN [Concomitant]
     Dosage: 500 MG, BID
  6. XANAX [Concomitant]
     Dosage: 0.5 MG, UNK
  7. WARFARIN [Concomitant]
  8. CITALOPRAM [Concomitant]
     Dosage: 20 MG, QD
  9. DIGOXIN [Concomitant]
     Dosage: 0.125 MG, QD
  10. ASA [Concomitant]
     Dosage: 81 MG, UNK
  11. LINACLOTIDE [Concomitant]
     Dosage: 0.145 UG, QD
  12. BUSPAR [Concomitant]
     Dosage: 10 MG, BID

REACTIONS (1)
  - Hepatitis C [Not Recovered/Not Resolved]
